FAERS Safety Report 25875969 (Version 1)
Quarter: 2025Q4

REPORT INFORMATION
  Report Type: Spontaneous
  Country: GB (occurrence: GB)
  Receive Date: 20251003
  Receipt Date: 20251003
  Transmission Date: 20260118
  Serious: Yes (Other)
  Sender: TEVA
  Company Number: GB-MHRA-TPP10371002C6944348YC1759157036897

PATIENT
  Age: 35 Year
  Sex: Female
  Weight: 124 kg

DRUGS (10)
  1. PROPRANOLOL [Suspect]
     Active Substance: PROPRANOLOL HYDROCHLORIDE
     Indication: Ill-defined disorder
     Dosage: TIME INTERVAL: 0.33333333 DAYS: AS REQUIRED
     Route: 048
     Dates: start: 20250911, end: 20250921
  2. PREDNISOLONE [Concomitant]
     Active Substance: PREDNISOLONE
     Indication: Ill-defined disorder
     Dosage: SEVEN TABLETS DAILY FOR 2 DAYS, THEN 6 TABLETS DAILY FOR 3 DAYS
     Dates: start: 20250924, end: 20250929
  3. BECLOMETHASONE DIPROPIONATE\FORMOTEROL FUMARATE [Concomitant]
     Active Substance: BECLOMETHASONE DIPROPIONATE\FORMOTEROL FUMARATE
     Indication: Ill-defined disorder
     Dosage: PUFF AND AS NEEDED AS A RELIEVE...
     Dates: start: 20250903
  4. NOVORAPID [Concomitant]
     Active Substance: INSULIN ASPART
     Indication: Ill-defined disorder
     Dosage: IMMEDIATELY BEFORE ...
     Route: 058
     Dates: start: 20250828, end: 20250923
  5. DESOGESTREL [Concomitant]
     Active Substance: DESOGESTREL
     Indication: Ill-defined disorder
     Dosage: AT THE SAME TIME EACH DAY
     Dates: start: 20250113
  6. SOPROBEC [Concomitant]
     Indication: Ill-defined disorder
     Dosage: INHALE REGULARLY (PREVENTER)
     Dates: start: 20250613, end: 20250903
  7. ALBUTEROL [Concomitant]
     Active Substance: ALBUTEROL
     Indication: Ill-defined disorder
     Dosage: ONE OR TWO PUFFS TO BE INHALED UP TO FOUR TIMES...
     Dates: start: 20250113, end: 20250923
  8. MIRTAZAPINE [Concomitant]
     Active Substance: MIRTAZAPINE
     Indication: Ill-defined disorder
     Dosage: AT NIGHT
     Dates: start: 20250409
  9. METFORMIN [Concomitant]
     Active Substance: METFORMIN HYDROCHLORIDE
     Indication: Ill-defined disorder
     Dates: start: 20250827
  10. LEVEMIR [Concomitant]
     Active Substance: INSULIN DETEMIR
     Indication: Ill-defined disorder
     Dosage: USE AS DIRECTED
     Dates: start: 20250828, end: 20250925

REACTIONS (1)
  - Asthma [Recovered/Resolved]

NARRATIVE: CASE EVENT DATE: 20250929
